FAERS Safety Report 8605340-8 (Version None)
Quarter: 2012Q3

REPORT INFORMATION
  Report Type: 
  Country: None (occurrence: None)
  Receive Date: 20120820
  Receipt Date: 20120814
  Transmission Date: 20120928
  Serious: Yes (Other)
  Sender: FDA-Public Use
  Company Number: US-BAYER-2012-084533

PATIENT
  Sex: Male

DRUGS (2)
  1. EPINEPHRINE [Concomitant]
  2. ALEVE (CAPLET) [Suspect]
     Indication: PAIN
     Dosage: 1 DF, ONCE
     Route: 048
     Dates: start: 20120810

REACTIONS (3)
  - ANXIETY [None]
  - HEART RATE INCREASED [None]
  - HYPERTENSION [None]
